FAERS Safety Report 12083069 (Version 1)
Quarter: 2016Q1

REPORT INFORMATION
  Report Type: Spontaneous
  Country: US (occurrence: None)
  Receive Date: 20160216
  Receipt Date: 20160216
  Transmission Date: 20160526
  Serious: Yes (Other)
  Sender: FDA-Public Use
  Company Number: None

PATIENT
  Age: 64 Year
  Sex: Female

DRUGS (1)
  1. RIBAVIRIN. [Suspect]
     Active Substance: RIBAVIRIN
     Route: 048

REACTIONS (6)
  - Hypersensitivity [None]
  - Nasopharyngitis [None]
  - Abdominal discomfort [None]
  - Headache [None]
  - Memory impairment [None]
  - Chromaturia [None]

NARRATIVE: CASE EVENT DATE: 20160211
